FAERS Safety Report 20944813 (Version 1)
Quarter: 2022Q2

REPORT INFORMATION
  Report Type: Report from Study
  Country: US (occurrence: US)
  Receive Date: 20220610
  Receipt Date: 20220610
  Transmission Date: 20220720
  Serious: Yes (Hospitalization)
  Sender: FDA-Public Use
  Company Number: US-BAYER-2022A079343

PATIENT
  Age: 65 Year
  Sex: Female

DRUGS (2)
  1. ADEMPAS [Suspect]
     Active Substance: RIOCIGUAT
     Indication: Pulmonary arterial hypertension
     Dosage: UNK
  2. ADEMPAS [Suspect]
     Active Substance: RIOCIGUAT
     Indication: Pulmonary arterial hypertension
     Dosage: 1 MG, TID
     Route: 048
     Dates: start: 20211124

REACTIONS (6)
  - Nausea [None]
  - Diarrhoea [None]
  - Abdominal distension [None]
  - Abdominal pain [None]
  - Malaise [None]
  - Asthenia [None]

NARRATIVE: CASE EVENT DATE: 20220525
